FAERS Safety Report 6607307-8 (Version None)
Quarter: 2010Q1

REPORT INFORMATION
  Report Type: 
  Country: None (occurrence: None)
  Receive Date: 20100228
  Receipt Date: 20100215
  Transmission Date: 20100710
  Serious: Yes (Death)
  Sender: FDA-Public Use
  Company Number: US-JNJFOC-20100208264

PATIENT
  Sex: Male
  Weight: 62.14 kg

DRUGS (2)
  1. FENTANYL [Suspect]
     Indication: BACK PAIN
     Route: 062
  2. VICODIN [Concomitant]

REACTIONS (8)
  - CARDIO-RESPIRATORY ARREST [None]
  - CEREBRAL ISCHAEMIA [None]
  - CONVULSION [None]
  - MULTI-ORGAN FAILURE [None]
  - NARCOTIC INTOXICATION [None]
  - OVERDOSE [None]
  - PNEUMONIA [None]
  - RHABDOMYOLYSIS [None]
